FAERS Safety Report 6991780-X (Version None)
Quarter: 2010Q3

REPORT INFORMATION
  Report Type: 
  Country: None (occurrence: None)
  Receive Date: 20100917
  Receipt Date: 20100908
  Transmission Date: 20110219
  Serious: No
  Sender: FDA-Public Use
  Company Number: US-PFIZER INC-2010103276

PATIENT
  Sex: Female
  Weight: 94 kg

DRUGS (2)
  1. LIPITOR [Suspect]
     Indication: HYPERLIPIDAEMIA
     Dosage: 20 MG, UNK
     Dates: start: 19980701
  2. ZETIA [Suspect]
     Dosage: UNK

REACTIONS (1)
  - MUSCLE DISORDER [None]
